FAERS Safety Report 20864342 (Version 1)
Quarter: 2022Q2

REPORT INFORMATION
  Report Type: Report from Study
  Country: BR (occurrence: BR)
  Receive Date: 20220523
  Receipt Date: 20220523
  Transmission Date: 20220721
  Serious: Yes (Other)
  Sender: FDA-Public Use
  Company Number: BR-ABBVIE-22K-020-4404660-00

PATIENT
  Sex: Female

DRUGS (2)
  1. RINVOQ [Suspect]
     Active Substance: UPADACITINIB
     Indication: Rheumatoid arthritis
     Route: 048
     Dates: start: 20200811
  2. INFLUENZA VIRUS VACCINE [Suspect]
     Active Substance: INFLUENZA VIRUS VACCINE
     Indication: Product used for unknown indication
     Route: 065

REACTIONS (8)
  - Illness [Unknown]
  - Face injury [Unknown]
  - Facial bones fracture [Unknown]
  - Rib fracture [Unknown]
  - Spinal fracture [Unknown]
  - Wrist fracture [Unknown]
  - Fall [Unknown]
  - Accident [Unknown]
